FAERS Safety Report 20564675 (Version 2)
Quarter: 2022Q1

REPORT INFORMATION
  Report Type: Spontaneous
  Country: GR (occurrence: GR)
  Receive Date: 20220308
  Receipt Date: 20220316
  Transmission Date: 20220423
  Serious: Yes (Other)
  Sender: FDA-Public Use
  Company Number: GR-SUN PHARMACEUTICAL INDUSTRIES LTD-2022R1-328666

PATIENT
  Age: 48 Year
  Sex: Male

DRUGS (3)
  1. CINACALCET [Suspect]
     Active Substance: CINACALCET
     Indication: Hypercalcaemia
     Dosage: 60 MILLIGRAM, TID
     Route: 065
     Dates: start: 2011
  2. CINACALCET [Suspect]
     Active Substance: CINACALCET
     Dosage: 270 MILLIGRAM, DAILY
     Route: 065
     Dates: start: 2011
  3. RISEDRONATE SODIUM [Suspect]
     Active Substance: RISEDRONATE SODIUM
     Indication: Hypercalcaemia
     Dosage: 35 MILLIGRAM, WEEKLY
     Route: 065
     Dates: start: 2014, end: 2016

REACTIONS (1)
  - Treatment failure [Unknown]
